FAERS Safety Report 8120206-8 (Version None)
Quarter: 2012Q1

REPORT INFORMATION
  Report Type: 
  Country: None (occurrence: None)
  Receive Date: 20120207
  Receipt Date: 20120201
  Transmission Date: 20120608
  Serious: Yes (Hospitalization, Other)
  Sender: FDA-Public Use
  Company Number: PHHY2012FR006535

PATIENT
  Sex: Male

DRUGS (4)
  1. IRBESARTAN [Concomitant]
     Indication: HYPERTENSION
     Dosage: 75 MG,
  2. AMLODIPINE BESYLATE [Concomitant]
     Indication: HYPERTENSION
     Dosage: UNK UKN, UNK
  3. CELIPROLOL [Concomitant]
     Indication: HYPERTENSION
     Dosage: 200 MG
  4. TASIGNA [Suspect]
     Indication: CHRONIC MYELOID LEUKAEMIA
     Dosage: 400 MG, BID
     Dates: start: 20100119

REACTIONS (3)
  - ACUTE CORONARY SYNDROME [None]
  - ATRIAL FIBRILLATION [None]
  - MYOCARDIAL INFARCTION [None]
